FAERS Safety Report 20646974 (Version 1)
Quarter: 2022Q1

REPORT INFORMATION
  Report Type: Spontaneous
  Country: US (occurrence: US)
  Receive Date: 20220329
  Receipt Date: 20220329
  Transmission Date: 20220423
  Serious: No
  Sender: FDA-Public Use
  Company Number: US-ELI_LILLY_AND_COMPANY-US202203011837

PATIENT
  Age: 63 Year
  Sex: Female

DRUGS (6)
  1. EMGALITY [Suspect]
     Active Substance: GALCANEZUMAB-GNLM
     Indication: Migraine
     Dosage: UNK UNK, UNKNOWN
     Route: 058
  2. EMGALITY [Suspect]
     Active Substance: GALCANEZUMAB-GNLM
     Indication: Migraine
     Dosage: UNK UNK, UNKNOWN
     Route: 058
  3. BOTOX [Concomitant]
     Active Substance: ONABOTULINUMTOXINA
     Indication: Product used for unknown indication
     Dosage: UNK UNK, UNKNOWN
     Route: 065
  4. PROPRANOLOL [Concomitant]
     Active Substance: PROPRANOLOL HYDROCHLORIDE
     Indication: Migraine
     Dosage: UNK UNK, UNKNOWN
  5. TOPAMAX [Concomitant]
     Active Substance: TOPIRAMATE
     Indication: Migraine
     Dosage: 120 MG, BID
     Route: 065
  6. SUMATRIPTAN [Concomitant]
     Active Substance: SUMATRIPTAN
     Indication: Migraine
     Dosage: 100 MG, MONTHLY (1/M) (12 PILLS AS NEEDED)
     Route: 065

REACTIONS (4)
  - Torticollis [Unknown]
  - Joint lock [Unknown]
  - Overdose [Unknown]
  - Product dose omission issue [Unknown]

NARRATIVE: CASE EVENT DATE: 20220321
